FAERS Safety Report 16751391 (Version 1)
Quarter: 2019Q3

REPORT INFORMATION
  Report Type: Spontaneous
  Country: US (occurrence: US)
  Receive Date: 20190710
  Receipt Date: 20190710
  Transmission Date: 20191005
  Serious: Yes (Hospitalization)
  Sender: FDA-Public Use
  Company Number: None

PATIENT
  Age: 33 Year
  Sex: Female

DRUGS (3)
  1. HUMIRA [Suspect]
     Active Substance: ADALIMUMAB
     Indication: HIDRADENITIS
     Dosage: ?          OTHER DOSE:1 PEN;OTHER FREQUENCY:DAY 29+Q WK;?
     Route: 058
     Dates: start: 20181218
  2. ZOLOFT [Concomitant]
     Active Substance: SERTRALINE HYDROCHLORIDE
  3. ANTIBIOTIC CRE PLUS [Concomitant]

REACTIONS (1)
  - Breast reconstruction [None]

NARRATIVE: CASE EVENT DATE: 20190530
